FAERS Safety Report 14139455 (Version 1)
Quarter: 2017Q4

REPORT INFORMATION
  Report Type: Spontaneous
  Country: FR (occurrence: FR)
  Receive Date: 20171028
  Receipt Date: 20171028
  Transmission Date: 20180321
  Serious: Yes (Other)
  Sender: FDA-Public Use
  Company Number: FR-MERCK KGAA-2032669

PATIENT
  Sex: Female

DRUGS (1)
  1. NOVOTHYROX [Suspect]
     Active Substance: LEVOTHYROXINE SODIUM
     Indication: PRODUCT USED FOR UNKNOWN INDICATION

REACTIONS (14)
  - Fatigue [Unknown]
  - Dysstasia [Unknown]
  - Burning sensation [Unknown]
  - Heart rate increased [Unknown]
  - Dizziness [Unknown]
  - pH urine decreased [Unknown]
  - Insomnia [Unknown]
  - Renal disorder [Unknown]
  - Dental caries [Unknown]
  - Muscle spasms [Unknown]
  - Suicidal ideation [Unknown]
  - Intestinal obstruction [Unknown]
  - Palpitations [Unknown]
  - Blood pressure increased [Unknown]
